FAERS Safety Report 10537715 (Version 1)
Quarter: 2014Q4

REPORT INFORMATION
  Report Type: Spontaneous
  Country: GR (occurrence: GR)
  Receive Date: 20141023
  Receipt Date: 20141023
  Transmission Date: 20150529
  Serious: Yes (Hospitalization, Other)
  Sender: FDA-Public Use
  Company Number: GR-ROXANE LABORATORIES, INC.-2014-RO-01611RO

PATIENT
  Age: 49 Year
  Sex: Female

DRUGS (3)
  1. CALCIUM CARBONATE. [Suspect]
     Active Substance: CALCIUM CARBONATE
     Indication: HYPOCALCAEMIA
     Dosage: 2000 MG
     Route: 065
  2. LEVOTHYROXINE [Concomitant]
     Active Substance: LEVOTHYROXINE
     Indication: THYROIDECTOMY
     Dosage: 0.1 MG
     Route: 065
  3. ALPHACALCIDOL [Suspect]
     Active Substance: ALFACALCIDOL
     Indication: HYPOCALCAEMIA
     Dosage: 1 MCG
     Route: 065

REACTIONS (4)
  - Pneumonia [Unknown]
  - Milk-alkali syndrome [Not Recovered/Not Resolved]
  - Pleural effusion [Unknown]
  - Pancreatitis acute [Not Recovered/Not Resolved]
